FAERS Safety Report 6371637-8 (Version None)
Quarter: 2009Q3

REPORT INFORMATION
  Report Type: 
  Country: None (occurrence: None)
  Receive Date: 20090923
  Receipt Date: 20080731
  Transmission Date: 20100115
  Serious: No
  Sender: FDA-Public Use
  Company Number: US-ASTRAZENECA-2008UW07257

PATIENT
  Age: 49 Year
  Sex: Female
  Weight: 136.1 kg

DRUGS (17)
  1. SEROQUEL [Suspect]
     Indication: PANIC ATTACK
     Dosage: 150 MG
     Route: 048
  2. SEROQUEL [Suspect]
     Indication: DEPRESSION
     Dosage: 150 MG
     Route: 048
  3. SEROQUEL [Suspect]
     Indication: ANXIETY
     Dosage: 150 MG
     Route: 048
  4. SEROQUEL [Suspect]
     Dosage: 100 MG
     Route: 048
     Dates: end: 20080101
  5. SEROQUEL [Suspect]
     Dosage: 100 MG
     Route: 048
     Dates: end: 20080101
  6. SEROQUEL [Suspect]
     Dosage: 100 MG
     Route: 048
     Dates: end: 20080101
  7. ZYPREXA [Suspect]
  8. SERTRALINE HCL [Suspect]
     Indication: DEPRESSION
  9. SERTRALINE HCL [Suspect]
     Indication: ANXIETY
  10. COGENTIN [Concomitant]
  11. PAXIL [Concomitant]
  12. XANAX [Concomitant]
  13. VALIUM [Concomitant]
  14. IMIPRAMINE [Concomitant]
  15. ATIVAN [Concomitant]
  16. FLUOXETINE [Concomitant]
  17. BUSPAR [Concomitant]

REACTIONS (15)
  - AMNESIA [None]
  - CHOKING SENSATION [None]
  - DRUG INEFFECTIVE FOR UNAPPROVED INDICATION [None]
  - DYSPNOEA [None]
  - FEELING ABNORMAL [None]
  - HALLUCINATION [None]
  - INSOMNIA [None]
  - MUSCLE INJURY [None]
  - MUSCLE RIGIDITY [None]
  - MUSCLE SPASMS [None]
  - OBESITY [None]
  - PANIC ATTACK [None]
  - SLEEP APNOEA SYNDROME [None]
  - SOMNOLENCE [None]
  - WEIGHT INCREASED [None]
